FAERS Safety Report 18169502 (Version 1)
Quarter: 2020Q3

REPORT INFORMATION
  Report Type: Spontaneous
  Country: US (occurrence: US)
  Receive Date: 20200819
  Receipt Date: 20200819
  Transmission Date: 20201103
  Serious: Yes (Other)
  Sender: FDA-Public Use
  Company Number: None

PATIENT
  Age: 36 Year
  Sex: Male

DRUGS (1)
  1. ISOVUE 300 [Suspect]
     Active Substance: IOPAMIDOL
     Route: 042

REACTIONS (4)
  - Rash macular [None]
  - Pruritus [None]
  - Erythema [None]
  - Sneezing [None]

NARRATIVE: CASE EVENT DATE: 20200818
